FAERS Safety Report 7990339-5 (Version None)
Quarter: 2011Q4

REPORT INFORMATION
  Report Type: 
  Country: None (occurrence: None)
  Receive Date: 20111219
  Receipt Date: 20110504
  Transmission Date: 20120403
  Serious: No
  Sender: FDA-Public Use
  Company Number: US-ASTRAZENECA-2011SE26795

PATIENT
  Age: 83 Year
  Sex: Female

DRUGS (1)
  1. CRESTOR [Suspect]
     Route: 048
     Dates: start: 20110302

REACTIONS (3)
  - DRUG DISPENSING ERROR [None]
  - MEMORY IMPAIRMENT [None]
  - FEELING ABNORMAL [None]
